FAERS Safety Report 20510911 (Version 1)
Quarter: 2022Q1

REPORT INFORMATION
  Report Type: Other
  Country: US (occurrence: None)
  Receive Date: 20220224
  Receipt Date: 20220224
  Transmission Date: 20220423
  Serious: Yes (Hospitalization)
  Sender: FDA-Public Use
  Company Number: US-ROCHE-2918983

PATIENT
  Age: 46 Year
  Sex: Female
  Weight: 72.640 kg

DRUGS (2)
  1. OCREVUS [Suspect]
     Active Substance: OCRELIZUMAB
     Indication: Multiple sclerosis
     Dosage: (PRESCRIBED AS 300 MG ON DAY 1 AND DAY 15 AND 600 MG ONCE IN 6 MONTHS)?DATE OF TREATMENT: 19/DEC/201
     Route: 042
     Dates: start: 20180615
  2. PFIZER-BIONTECH COVID-19 VACCINE [Suspect]
     Active Substance: TOZINAMERAN
     Indication: Product used for unknown indication
     Route: 065
     Dates: start: 202104

REACTIONS (3)
  - Gait disturbance [Not Recovered/Not Resolved]
  - Decreased appetite [Not Recovered/Not Resolved]
  - COVID-19 [Not Recovered/Not Resolved]

NARRATIVE: CASE EVENT DATE: 20210301
